FAERS Safety Report 8355457-0 (Version None)
Quarter: 2012Q2

REPORT INFORMATION
  Report Type: 
  Country: None (occurrence: None)
  Receive Date: 20120512
  Receipt Date: 20120504
  Transmission Date: 20120825
  Serious: Yes (Death, Life-Threatening, Other)
  Sender: FDA-Public Use
  Company Number: US-ROXANE LABORATORIES, INC.-2012-RO-01191RO

PATIENT
  Age: 49 Year
  Sex: Female

DRUGS (4)
  1. INTERFERON ALFA [Suspect]
     Indication: ADULT T-CELL LYMPHOMA/LEUKAEMIA
  2. METHOTREXATE [Suspect]
     Indication: PSORIASIS
     Route: 048
  3. PAMIDRONATE DISODIUM [Suspect]
     Indication: HYPERCALCAEMIA
  4. LAMIVUDINE AND ZIDOVUDINE [Suspect]
     Indication: ADULT T-CELL LYMPHOMA/LEUKAEMIA

REACTIONS (7)
  - RESPIRATORY DISTRESS [None]
  - LIVER FUNCTION TEST ABNORMAL [None]
  - DISSEMINATED INTRAVASCULAR COAGULATION [None]
  - ADULT T-CELL LYMPHOMA/LEUKAEMIA [None]
  - RENAL FAILURE ACUTE [None]
  - HUMAN T-CELL LYMPHOTROPIC VIRUS TYPE I INFECTION [None]
  - LUNG INFILTRATION [None]
